FAERS Safety Report 7758016-3 (Version None)
Quarter: 2011Q3

REPORT INFORMATION
  Report Type: 
  Country: None (occurrence: None)
  Receive Date: 20110919
  Receipt Date: 20110909
  Transmission Date: 20111222
  Serious: No
  Sender: FDA-Public Use
  Company Number: US-BIOGENIDEC-2011BI022052

PATIENT
  Age: 66 Year
  Sex: Female

DRUGS (3)
  1. TYSABRI [Suspect]
     Indication: MULTIPLE SCLEROSIS
     Route: 042
     Dates: start: 20091019
  2. ADVIL LIQUI-GELS [Concomitant]
  3. AVONEX [Concomitant]
     Indication: MULTIPLE SCLEROSIS
     Route: 030
     Dates: start: 20080812

REACTIONS (6)
  - DECREASED APPETITE [None]
  - MALAISE [None]
  - CHEST INJURY [None]
  - FALL [None]
  - GAIT DISTURBANCE [None]
  - DYSARTHRIA [None]
